FAERS Safety Report 6644623-8 (Version None)
Quarter: 2010Q1

REPORT INFORMATION
  Report Type: 
  Country: None (occurrence: None)
  Receive Date: 20100322
  Receipt Date: 20100315
  Transmission Date: 20100710
  Serious: Yes (Other)
  Sender: FDA-Public Use
  Company Number: SG-GENENTECH-299383

PATIENT

DRUGS (1)
  1. ACTIVASE [Suspect]
     Indication: RETINAL ARTERY OCCLUSION

REACTIONS (1)
  - ISCHAEMIC STROKE [None]
